FAERS Safety Report 9467669 (Version 1)
Quarter: 2013Q3

REPORT INFORMATION
  Report Type: Spontaneous
  Country: DE (occurrence: DE)
  Receive Date: 20130821
  Receipt Date: 20130821
  Transmission Date: 20140515
  Serious: Yes (Life-Threatening, Hospitalization, Other)
  Sender: FDA-Public Use
  Company Number: DE-JNJFOC-20130805811

PATIENT
  Sex: Male
  Weight: 1.75 kg

DRUGS (3)
  1. HALDOL [Suspect]
     Indication: PSYCHOTIC DISORDER
     Route: 064
  2. TAVOR [Suspect]
     Indication: PSYCHOTIC DISORDER
     Route: 064
  3. CELESTAN [Concomitant]
     Indication: MATERNAL THERAPY TO ENHANCE FOETAL LUNG MATURITY
     Route: 064

REACTIONS (8)
  - Neonatal respiratory distress syndrome [Recovered/Resolved]
  - Foetal chromosome abnormality [Not Recovered/Not Resolved]
  - Pneumothorax [Unknown]
  - Bradycardia [Unknown]
  - Anaemia [Unknown]
  - Premature baby [Unknown]
  - Feeding disorder [Unknown]
  - Foetal exposure during pregnancy [Unknown]
